FAERS Safety Report 10253427 (Version 1)
Quarter: 2014Q2

REPORT INFORMATION
  Report Type: Spontaneous
  Country: US (occurrence: US)
  Receive Date: 20140623
  Receipt Date: 20140623
  Transmission Date: 20141212
  Serious: Yes (Death, Life-Threatening)
  Sender: FDA-Public Use
  Company Number: PHHY2014US073250

PATIENT
  Age: 58 Year
  Sex: Male

DRUGS (4)
  1. TACROLIMUS [Suspect]
     Indication: IMMUNOSUPPRESSION
  2. RIBAVIRIN [Suspect]
     Indication: HEPATITIS C
  3. DACLIZUMAB [Suspect]
     Indication: IMMUNOSUPPRESSION
  4. PEGINTERFERON [Suspect]
     Indication: HEPATITIS C

REACTIONS (4)
  - Hepatitis cholestatic [Fatal]
  - Liver graft loss [Fatal]
  - Renal transplant failure [Unknown]
  - No therapeutic response [Unknown]
